FAERS Safety Report 8482223-8 (Version None)
Quarter: 2012Q3

REPORT INFORMATION
  Report Type: 
  Country: None (occurrence: None)
  Receive Date: 20120702
  Receipt Date: 20120628
  Transmission Date: 20120928
  Serious: No
  Sender: FDA-Public Use
  Company Number: US-BAYER-2012-064889

PATIENT
  Sex: Female

DRUGS (6)
  1. BETASERON [Suspect]
     Dosage: 0.3 MG, QOD
     Route: 058
  2. XANAX [Concomitant]
     Dosage: 1 MG
  3. PREDNISONE [Concomitant]
     Dosage: 1 MG
  4. DEPAKOTE [Concomitant]
     Dosage: 125 MG
  5. DIVALPROEX SODIUM [Concomitant]
     Dosage: 125 MG
  6. PRIMIDONE [Concomitant]
     Dosage: 250 MG

REACTIONS (2)
  - INJECTION SITE PRURITUS [None]
  - INJECTION SITE INDURATION [None]
